FAERS Safety Report 15246784 (Version 2)
Quarter: 2020Q3

REPORT INFORMATION
  Report Type: Spontaneous
  Country: NL (occurrence: NL)
  Receive Date: 20180806
  Receipt Date: 20200708
  Transmission Date: 20201102
  Serious: Yes (Other)
  Sender: FDA-Public Use
  Company Number: PHHY2018NL061910

PATIENT
  Age: 43 Year
  Sex: Female

DRUGS (1)
  1. PREDNISONE. [Suspect]
     Active Substance: PREDNISONE
     Indication: OPTIC NEUROPATHY
     Dosage: UNK
     Route: 048

REACTIONS (5)
  - Blindness [Unknown]
  - Disease progression [Unknown]
  - Drug ineffective [Unknown]
  - Optic neuropathy [Unknown]
  - Optic neuritis [Unknown]

NARRATIVE: CASE EVENT DATE: 2014
